FAERS Safety Report 26103847 (Version 1)
Quarter: 2025Q4

REPORT INFORMATION
  Report Type: Spontaneous
  Country: JP (occurrence: JP)
  Receive Date: 20251129
  Receipt Date: 20251129
  Transmission Date: 20260118
  Serious: Yes (Death, Other)
  Sender: AMGEN
  Company Number: JP-AMGEN-JPNSP2025235405

PATIENT
  Age: 50 Year
  Sex: Male

DRUGS (1)
  1. SOTORASIB [Suspect]
     Active Substance: SOTORASIB
     Indication: Lung squamous cell carcinoma stage III
     Dosage: UNK
     Route: 065

REACTIONS (6)
  - Death [Fatal]
  - Duodenal stenosis [Unknown]
  - Bile duct stenosis [Unknown]
  - Jaundice cholestatic [Unknown]
  - Cytokine release syndrome [Recovering/Resolving]
  - Lung cancer metastatic [Unknown]
